FAERS Safety Report 4361002-7 (Version None)
Quarter: 2004Q2

REPORT INFORMATION
  Report Type: 
  Country: None (occurrence: None)
  Receive Date: 20040517
  Receipt Date: 20040503
  Transmission Date: 20050107
  Serious: Yes (Life-Threatening, Hospitalization, Disabling, Other)
  Sender: FDA-Public Use
  Company Number: A125155

PATIENT
  Age: 3 Year
  Sex: Male
  Weight: 15 kg

DRUGS (4)
  1. ZITHROMAX [Suspect]
     Indication: ILL-DEFINED DISORDER
     Dosage: UNKNOWN (DAILY), ORAL
     Route: 048
     Dates: start: 20010501, end: 20011017
  2. ERYTHROMYCIN [Suspect]
     Indication: ILL-DEFINED DISORDER
  3. CHLORAL HYDRATE (CHLORAL HYDRATE) [Suspect]
     Indication: SLEEP DISORDER
     Dosage: 500 MG (PRN), ORAL
     Route: 048
     Dates: start: 20010926, end: 20011013
  4. CHLORAMPHENICOL [Concomitant]

REACTIONS (94)
  - ABDOMINAL DISTENSION [None]
  - ABNORMAL BEHAVIOUR [None]
  - AGITATION [None]
  - ANAEMIA [None]
  - ANXIETY [None]
  - ASTHENIA [None]
  - ASTHMA [None]
  - ATELECTASIS [None]
  - BLINDNESS [None]
  - BLOOD IMMUNOGLOBULIN A DECREASED [None]
  - BRONCHITIS [None]
  - CONJUNCTIVITIS [None]
  - CONSTIPATION [None]
  - CORNEAL ABRASION [None]
  - CORNEAL NEOVASCULARISATION [None]
  - CORNEAL SCAR [None]
  - CORNEAL ULCER [None]
  - CREPITATIONS [None]
  - CROUP INFECTIOUS [None]
  - CRYING [None]
  - DEHYDRATION [None]
  - DERMATITIS EXFOLIATIVE [None]
  - DEVELOPMENTAL DELAY [None]
  - DIARRHOEA [None]
  - DISEASE RECURRENCE [None]
  - DYSPHAGIA [None]
  - DYSURIA [None]
  - ENTROPION [None]
  - EOSINOPHIL COUNT INCREASED [None]
  - EOSINOPHILIA [None]
  - EYE INJURY [None]
  - FEAR [None]
  - GASTRITIS [None]
  - HAEMODYNAMIC INSTABILITY [None]
  - HAEMORRHAGE [None]
  - HIATUS HERNIA [None]
  - HYPERPLASIA [None]
  - HYPERSENSITIVITY [None]
  - INTENTIONAL SELF-INJURY [None]
  - INTESTINAL SPASM [None]
  - KAWASAKI'S DISEASE [None]
  - LAGOPHTHALMOS [None]
  - LETHARGY [None]
  - MASS [None]
  - MEIBOMIAN GLAND DISCHARGE [None]
  - METAPLASIA [None]
  - MILIA [None]
  - MYCOPLASMA INFECTION [None]
  - NEUTROPHILIA [None]
  - NIGHTMARE [None]
  - OBSTRUCTIVE AIRWAYS DISORDER [None]
  - OESOPHAGITIS [None]
  - ORAL INFECTION [None]
  - OTITIS MEDIA [None]
  - OTORRHOEA [None]
  - PENIS DISORDER [None]
  - PHOTOSENSITIVITY REACTION [None]
  - PLATELET COUNT INCREASED [None]
  - PLEURAL EFFUSION [None]
  - PNEUMONIA [None]
  - POST INFLAMMATORY PIGMENTATION CHANGE [None]
  - PSYCHOMOTOR RETARDATION [None]
  - PTERYGIUM [None]
  - PULMONARY CONGESTION [None]
  - PULMONARY HAEMORRHAGE [None]
  - PULMONARY OEDEMA [None]
  - PYREXIA [None]
  - RASH ERYTHEMATOUS [None]
  - RASH MACULAR [None]
  - RASH SCALY [None]
  - RED BLOOD CELL COUNT DECREASED [None]
  - RHINITIS [None]
  - SCAB [None]
  - SCAR [None]
  - SINUS DISORDER [None]
  - SKIN HYPOPIGMENTATION [None]
  - SKIN LESION [None]
  - SKIN WRINKLING [None]
  - SLEEP DISORDER [None]
  - SOCIAL AVOIDANT BEHAVIOUR [None]
  - SPEECH DISORDER [None]
  - STAPHYLOCOCCAL INFECTION [None]
  - STEVENS-JOHNSON SYNDROME [None]
  - STREPTOCOCCAL INFECTION [None]
  - SWEAT GLAND DISORDER [None]
  - TACHYCARDIA [None]
  - TOXIC EPIDERMAL NECROLYSIS [None]
  - TREMOR [None]
  - URINE ABNORMALITY [None]
  - URINE OUTPUT DECREASED [None]
  - VEIN DISORDER [None]
  - VIRAL UPPER RESPIRATORY TRACT INFECTION [None]
  - VOMITING [None]
  - XEROSIS [None]
